FAERS Safety Report 8177791-X (Version None)
Quarter: 2012Q1

REPORT INFORMATION
  Report Type: 
  Country: None (occurrence: None)
  Receive Date: 20120301
  Receipt Date: 20120224
  Transmission Date: 20120608
  Serious: Yes (Other)
  Sender: FDA-Public Use
  Company Number: US-BAYER-2012-018461

PATIENT
  Sex: Female

DRUGS (1)
  1. ASPIRIN [Suspect]

REACTIONS (4)
  - NASOPHARYNGITIS [None]
  - SINUSITIS [None]
  - MALAISE [None]
  - NASAL CONGESTION [None]
